FAERS Safety Report 7296773-3 (Version None)
Quarter: 2011Q1

REPORT INFORMATION
  Report Type: 
  Country: None (occurrence: None)
  Receive Date: 20110216
  Receipt Date: 20110210
  Transmission Date: 20110831
  Serious: Yes (Other)
  Sender: FDA-Public Use
  Company Number: B0686225A

PATIENT
  Sex: Male

DRUGS (7)
  1. LANSOPRAZOLE [Concomitant]
     Dosage: 30MG TWICE PER DAY
     Route: 065
  2. FLIXOTIDE [Suspect]
     Indication: ASTHMA
     Dosage: 500MCG TWICE PER DAY
     Route: 055
     Dates: start: 20090301
  3. PREDNISOLONE [Concomitant]
     Dosage: 40MG PER DAY
     Route: 048
  4. FLIXONASE [Suspect]
     Indication: RHINITIS
     Dosage: 200MCG TWICE PER DAY
     Route: 045
  5. RANITIDINE [Concomitant]
     Dosage: 300MG AT NIGHT
     Route: 065
  6. ORAL STEROIDS [Concomitant]
  7. FORMOTEROL FUMARATE [Concomitant]
     Dosage: 2PUFF TWICE PER DAY
     Route: 065

REACTIONS (3)
  - FATIGUE [None]
  - MALAISE [None]
  - ADRENAL SUPPRESSION [None]
